FAERS Safety Report 25058709 (Version 1)
Quarter: 2025Q1

REPORT INFORMATION
  Report Type: Spontaneous
  Country: TH (occurrence: TH)
  Receive Date: 20250310
  Receipt Date: 20250310
  Transmission Date: 20250409
  Serious: Yes (Hospitalization, Other)
  Sender: NOVARTIS
  Company Number: TH-002147023-NVSC2025TH034885

PATIENT
  Age: 63 Year
  Sex: Female

DRUGS (2)
  1. ALPELISIB [Suspect]
     Active Substance: ALPELISIB
     Dosage: 2 DOSAGE FORM, QD
     Route: 065
  2. ALPELISIB [Suspect]
     Active Substance: ALPELISIB
     Dosage: 1 DOSAGE FORM, QD
     Route: 065

REACTIONS (22)
  - Pyrexia [Recovering/Resolving]
  - Oropharyngeal pain [Unknown]
  - Feeding disorder [Unknown]
  - Dysstasia [Unknown]
  - Asthenia [Unknown]
  - Vomiting [Unknown]
  - Chills [Unknown]
  - Dizziness [Unknown]
  - Pain [Unknown]
  - Influenza like illness [Unknown]
  - Haematological infection [Unknown]
  - Headache [Unknown]
  - Syncope [Unknown]
  - Chest discomfort [Unknown]
  - Palpitations [Unknown]
  - Rash erythematous [Unknown]
  - Nausea [Unknown]
  - Dry mouth [Unknown]
  - Dry throat [Unknown]
  - Fatigue [Unknown]
  - Rash macular [Unknown]
  - Dry skin [Unknown]

NARRATIVE: CASE EVENT DATE: 20250201
